FAERS Safety Report 17230807 (Version 1)
Quarter: 2020Q1

REPORT INFORMATION
  Report Type: Spontaneous
  Country: US (occurrence: US)
  Receive Date: 20200103
  Receipt Date: 20200103
  Transmission Date: 20200409
  Serious: No
  Sender: FDA-Public Use
  Company Number: US-BAYER-2019-235410

PATIENT
  Age: 91 Year
  Sex: Male

DRUGS (3)
  1. METAMUCIL [Suspect]
     Active Substance: PLANTAGO SEED
     Indication: GASTROINTESTINAL DISORDER
     Dosage: UNK
     Route: 065
  2. MIRALAX [Suspect]
     Active Substance: POLYETHYLENE GLYCOL 3350
     Indication: GASTROINTESTINAL DISORDER
     Dosage: 17 G, QD
     Route: 048
     Dates: start: 20191213, end: 20191219
  3. VITAMINS NOS [Concomitant]
     Active Substance: VITAMINS
     Dosage: UNK

REACTIONS (2)
  - Polyuria [Unknown]
  - Gastrointestinal tract irritation [Recovering/Resolving]
